FAERS Safety Report 18151066 (Version 1)
Quarter: 2020Q3

REPORT INFORMATION
  Report Type: Spontaneous
  Country: US (occurrence: US)
  Receive Date: 20200814
  Receipt Date: 20200814
  Transmission Date: 20201103
  Serious: No
  Sender: FDA-Public Use
  Company Number: US-PFIZER INC-2020312867

PATIENT
  Age: 55 Year
  Sex: Female

DRUGS (3)
  1. BETADINE [Suspect]
     Active Substance: POVIDONE-IODINE
     Dosage: UNK
  2. CARBOPLATIN. [Suspect]
     Active Substance: CARBOPLATIN
     Dosage: UNK
  3. IODINE. [Suspect]
     Active Substance: IODINE
     Dosage: UNK

REACTIONS (1)
  - Drug hypersensitivity [Unknown]
